FAERS Safety Report 4784159-2 (Version None)
Quarter: 2005Q3

REPORT INFORMATION
  Report Type: 
  Country: None (occurrence: None)
  Receive Date: 20050930
  Receipt Date: 20050811
  Transmission Date: 20060218
  Serious: Yes (Other)
  Sender: FDA-Public Use
  Company Number: US-GLAXOSMITHKLINE-A0569792A

PATIENT
  Age: 68 Year
  Sex: Male

DRUGS (6)
  1. FLOVENT [Suspect]
     Indication: ASTHMA
     Dosage: 2PUFF TWICE PER DAY
     Route: 055
  2. PROVENTIL [Concomitant]
  3. COZAAR [Concomitant]
  4. ZETIA [Concomitant]
  5. NASONEX [Concomitant]
  6. FLOMAX [Concomitant]

REACTIONS (5)
  - ASTHMA [None]
  - COUGH [None]
  - DRUG INEFFECTIVE [None]
  - PHARMACEUTICAL PRODUCT COMPLAINT [None]
  - WHEEZING [None]
